FAERS Safety Report 5910627-3 (Version None)
Quarter: 2008Q4

REPORT INFORMATION
  Report Type: 
  Country: None (occurrence: None)
  Receive Date: 20081007
  Receipt Date: 20080926
  Transmission Date: 20090506
  Serious: Yes (Death, Hospitalization)
  Sender: FDA-Public Use
  Company Number: FR-JNJFOC-20080906601

PATIENT
  Age: 55 Year
  Sex: Female

DRUGS (6)
  1. REMICADE [Suspect]
     Indication: CROHN'S DISEASE
     Route: 042
  2. IMUREL [Suspect]
     Indication: CROHN'S DISEASE
     Route: 048
  3. CHLORAL HYDRATE [Concomitant]
  4. CLOMIPRAMINE HCL [Concomitant]
  5. XANAX [Concomitant]
  6. INIPOMP [Concomitant]

REACTIONS (13)
  - ACINETOBACTER BACTERAEMIA [None]
  - ACUTE RESPIRATORY DISTRESS SYNDROME [None]
  - BRONCHOPNEUMOPATHY [None]
  - CANDIDA SEPSIS [None]
  - DYSPHAGIA [None]
  - DYSPHONIA [None]
  - HAEMORRHAGIC DISORDER [None]
  - HYPERSENSITIVITY [None]
  - LYMPHADENOPATHY [None]
  - ODYNOPHAGIA [None]
  - OEDEMA PERIPHERAL [None]
  - PULMONARY EMBOLISM [None]
  - THROMBOCYTOPENIA [None]
